FAERS Safety Report 5756060-9 (Version None)
Quarter: 2008Q2

REPORT INFORMATION
  Report Type: 
  Country: None (occurrence: None)
  Receive Date: 20080528
  Receipt Date: 20080521
  Transmission Date: 20081010
  Serious: Yes (Other)
  Sender: FDA-Public Use
  Company Number: 027646

PATIENT
  Age: 18 Year
  Sex: Female

DRUGS (2)
  1. MEDROXYPROGESTERONE ACETATE(MEDROXYPROGESTERONE ACETATE) TABLET, 10MG [Suspect]
     Indication: MENSTRUAL DISORDER
     Dosage: 10 MG FOR 4 DAYS,; 6 TABLETS(OVER 10/12 DAYS),
     Dates: start: 20071113
  2. MEDROXYPROGESTERONE ACETATE(MEDROXYPROGESTERONE ACETATE) TABLET, 10MG [Suspect]
     Indication: MENSTRUAL DISORDER
     Dosage: 10 MG FOR 4 DAYS,; 6 TABLETS(OVER 10/12 DAYS),
     Dates: start: 20080427

REACTIONS (7)
  - DRUG EXPOSURE DURING PREGNANCY [None]
  - ECTOPIC PREGNANCY [None]
  - INAPPROPRIATE SCHEDULE OF DRUG ADMINISTRATION [None]
  - PREGNANCY TEST URINE POSITIVE [None]
  - SELF-MEDICATION [None]
  - TREATMENT NONCOMPLIANCE [None]
  - VAGINAL HAEMORRHAGE [None]
